FAERS Safety Report 7669083-X (Version None)
Quarter: 2011Q3

REPORT INFORMATION
  Report Type: 
  Country: None (occurrence: None)
  Receive Date: 20110808
  Receipt Date: 20110804
  Transmission Date: 20111222
  Serious: Yes (Hospitalization, Other)
  Sender: FDA-Public Use
  Company Number: DE-ABBOTT-11P-062-0835233-00

PATIENT
  Sex: Female
  Weight: 70 kg

DRUGS (1)
  1. ZEMPLAR [Suspect]
     Indication: PRODUCT USED FOR UNKNOWN INDICATION
     Dosage: 2 AMPOULES  WITH 5 MICROG/ML PER WEEK
     Route: 042
     Dates: start: 20070327, end: 20101206

REACTIONS (1)
  - ENDOCARDITIS BACTERIAL [None]
